FAERS Safety Report 12823195 (Version 1)
Quarter: 2016Q4

REPORT INFORMATION
  Report Type: Spontaneous
  Country: US (occurrence: US)
  Receive Date: 20161006
  Receipt Date: 20161006
  Transmission Date: 20170207
  Serious: No
  Sender: FDA-Public Use
  Company Number: None

PATIENT
  Age: 56 Year
  Sex: Male
  Weight: 146.5 kg

DRUGS (1)
  1. EMPAGLIFLOZIN [Suspect]
     Active Substance: EMPAGLIFLOZIN
     Indication: DIABETES MELLITUS
     Route: 048
     Dates: start: 20160407, end: 20160630

REACTIONS (21)
  - Influenza like illness [None]
  - Hostility [None]
  - Agitation [None]
  - Asthenia [None]
  - Suicidal ideation [None]
  - Headache [None]
  - Sedation [None]
  - Photophobia [None]
  - Depression [None]
  - Vomiting [None]
  - Vision blurred [None]
  - Fatigue [None]
  - Impaired work ability [None]
  - Disturbance in attention [None]
  - Memory impairment [None]
  - Thought blocking [None]
  - Musculoskeletal stiffness [None]
  - Confusional state [None]
  - Paranoia [None]
  - Nausea [None]
  - Mental disorder [None]

NARRATIVE: CASE EVENT DATE: 20160713
